FAERS Safety Report 9230400 (Version 1)
Quarter: 2013Q1

REPORT INFORMATION
  Report Type: Spontaneous
  Country: US (occurrence: None)
  Receive Date: 20121031
  Receipt Date: 20121031
  Transmission Date: 20140127
  Serious: No
  Sender: FDA-Public Use
  Company Number: PHEH2012US013751

PATIENT
  Age: 44 Year
  Sex: Female
  Weight: 92.5 kg

DRUGS (11)
  1. GILENYA (FTY) CAPSULE, 0.5MG [Suspect]
     Indication: MULTIPLE SCLEROSIS
     Route: 048
     Dates: start: 20120628
  2. VIACTIV (CALCIUM, COLECALCIFEROL) [Concomitant]
  3. CRANBERRY SUPPLEMENT [Concomitant]
  4. VITAMIN D (ERGOCALCIFEROL) [Concomitant]
  5. FLINSTONES MUTIPLE VITAMINS (VITAMIN NOS) [Concomitant]
  6. GABAPENTIN (GABAPENTIN) [Concomitant]
  7. AMANTADINE (AMANTADINE) [Concomitant]
  8. OXYBUTYNIN (OSYBUTYNIN) [Concomitant]
  9. BACLOFEN (BACLOFEN) [Concomitant]
  10. LORAZEPAM (LORAZEPAM) [Concomitant]
  11. ALEVE (NAPROXEN SODIUM) [Concomitant]

REACTIONS (5)
  - Pain in extremity [None]
  - Alopecia [None]
  - Headache [None]
  - Eye pain [None]
  - Vision blurred [None]
